FAERS Safety Report 11049265 (Version 1)
Quarter: 2015Q2

REPORT INFORMATION
  Report Type: Spontaneous
  Country: US (occurrence: US)
  Receive Date: 20150420
  Receipt Date: 20150420
  Transmission Date: 20150821
  Serious: No
  Sender: FDA-Public Use
  Company Number: US-BAYER-2015-141862

PATIENT
  Age: 79 Year
  Sex: Male

DRUGS (1)
  1. LOTRIMIN ULTRA [Suspect]
     Active Substance: BUTENAFINE HYDROCHLORIDE
     Indication: FUNGAL INFECTION
     Dosage: 1 DOSE, ONCE
     Route: 061
     Dates: start: 20150410, end: 20150410

REACTIONS (1)
  - Medication error [None]

NARRATIVE: CASE EVENT DATE: 20150410
